FAERS Safety Report 8544186 (Version 2)
Quarter: 2012Q4

REPORT INFORMATION
  Report Type: 
  Country: US (occurrence: US)
  Receive Date: 20120503
  Receipt Date: 20120904
  Transmission Date: 20130627
  Serious: Yes (Hospitalization, Other)
  Sender: FDA-Public Use
  Company Number: US-BAYER-2012-042005

PATIENT
  Age: 47 Year
  Sex: Female

DRUGS (13)
  1. YAZ [Suspect]
     Indication: CONTRACEPTION
     Dosage: UNK
     Dates: start: 20100316, end: 20100330
  2. YAZ [Suspect]
     Indication: DYSMENORRHOEA
  3. LASIX [FUROSEMIDE] [Concomitant]
     Dosage: 40 mg daily, UNK
     Route: 048
  4. PULMICORT TURBUHALER [Concomitant]
     Dosage: 90 mcg/inh,UNK, BID
  5. POTASSIUM CHLORIDE [Concomitant]
     Dosage: 20 mEq, BID
     Route: 048
  6. ASTELIN [AZELASTINE HYDROCHLORIDE] [Concomitant]
     Dosage: 2 sprays each nostril 2 to 3 times dailyUNK, UNK
     Route: 045
  7. FERROUS SULFATE [Concomitant]
     Dosage: 325 mg, BID
  8. CIPROFLOXACIN [Concomitant]
     Dosage: 500 mg every 12 hours for 3 days, UNK
  9. TESSALON PERLES [Concomitant]
     Indication: COUGH
     Dosage: UNK UNK, PRN
     Dates: start: 20100312
  10. MEGACE [Concomitant]
     Dosage: 40 mg, QID
     Route: 048
     Dates: end: 20100316
  11. MEDROXYPROGESTERONE ACETATE [Concomitant]
  12. BACTRIM [SULFAMETHOXAZOLE,TRIMETHOPRIM] [Concomitant]
     Indication: URINARY TRACT INFECTION
     Route: 048
  13. PACKED RED BLOOD CELLS [Concomitant]
     Indication: IRON DEFICIENCY ANAEMIA
     Dosage: 2 u, UNK
     Dates: start: 20100312

REACTIONS (11)
  - Pulmonary embolism [None]
  - Deep vein thrombosis [None]
  - Injury [None]
  - Pain [None]
  - Pulmonary hypertension [None]
  - Dyspnoea [None]
  - Vaginal haemorrhage [None]
  - Fatigue [None]
  - Left atrial dilatation [None]
  - Uterine leiomyoma [None]
  - Pain [None]
